FAERS Safety Report 14283886 (Version 2)
Quarter: 2018Q1

REPORT INFORMATION
  Report Type: Spontaneous
  Country: US (occurrence: US)
  Receive Date: 20171214
  Receipt Date: 20180131
  Transmission Date: 20180509
  Serious: No
  Sender: FDA-Public Use
  Company Number: PHHY2017US186680

PATIENT
  Sex: Female

DRUGS (1)
  1. SYSTANE LUBRICANT [Suspect]
     Active Substance: POLYETHYLENE GLYCOL 400\PROPYLENE GLYCOL
     Indication: DRY EYE
     Dosage: 1 GTT, BID
     Route: 047

REACTIONS (9)
  - Eyelid exfoliation [Unknown]
  - Erythema of eyelid [Unknown]
  - Drug hypersensitivity [Recovered/Resolved]
  - Eye swelling [Recovered/Resolved]
  - Ocular hyperaemia [Recovered/Resolved]
  - Sinusitis [Unknown]
  - Rhinorrhoea [Unknown]
  - Rhinitis [Recovered/Resolved]
  - Vision blurred [Recovered/Resolved]
